FAERS Safety Report 4331222-6 (Version None)
Quarter: 2004Q1

REPORT INFORMATION
  Report Type: 
  Country: None (occurrence: None)
  Receive Date: 20040331
  Receipt Date: 20040317
  Transmission Date: 20041129
  Serious: Yes (Hospitalization)
  Sender: FDA-Public Use
  Company Number: 2004007132

PATIENT
  Age: 53 Year
  Sex: Male

DRUGS (1)
  1. VIAGRA [Suspect]
     Indication: ERECTILE DYSFUNCTION
     Dosage: 150 MG, ORAL
     Route: 048
     Dates: start: 20040130, end: 20040130

REACTIONS (1)
  - THROMBOTIC STROKE [None]
